FAERS Safety Report 24761380 (Version 1)
Quarter: 2024Q4

REPORT INFORMATION
  Report Type: Spontaneous
  Country: US (occurrence: US)
  Receive Date: 20241220
  Receipt Date: 20241220
  Transmission Date: 20250115
  Serious: Yes (Other)
  Sender: PURDUE
  Company Number: US-PURDUE-USA-2024-0314149

PATIENT
  Age: 45 Year
  Sex: Male

DRUGS (2)
  1. DEXTROAMPHETAMINE SACCHARATE, AMPHETAMINE ASPARTATE, DEXTROAMPHETAMINE [Suspect]
     Active Substance: AMPHETAMINE ASPARTATE\AMPHETAMINE SULFATE\DEXTROAMPHETAMINE SACCHARATE\DEXTROAMPHETAMINE SULFATE
     Indication: Product used for unknown indication
     Dosage: UNK
     Route: 048
  2. MIDOMAFETAMINE [Suspect]
     Active Substance: MIDOMAFETAMINE
     Indication: Product used for unknown indication
     Dosage: UNK
     Route: 065

REACTIONS (10)
  - Renal impairment [Unknown]
  - Overdose [Unknown]
  - Rhabdomyolysis [Unknown]
  - Substance abuse [Unknown]
  - Hypoglycaemia [Unknown]
  - Renal disorder [Unknown]
  - Cardiac disorder [Unknown]
  - Respiratory disorder [Unknown]
  - Metabolic disorder [Unknown]
  - Abnormal behaviour [Unknown]
